FAERS Safety Report 8532649-9 (Version None)
Quarter: 2012Q3

REPORT INFORMATION
  Report Type: 
  Country: None (occurrence: None)
  Receive Date: 20120724
  Receipt Date: 20120717
  Transmission Date: 20120928
  Serious: Yes (Death)
  Sender: FDA-Public Use
  Company Number: US-BAYER-2011-066481

PATIENT
  Age: 25 Year
  Sex: Female
  Weight: 114.29 kg

DRUGS (4)
  1. DOXYCYCLINE [Concomitant]
     Indication: VAGINAL INFECTION
     Dosage: UNK
     Dates: start: 20100501
  2. ACETAMINOPHEN [Concomitant]
  3. YASMIN [Suspect]
     Indication: CONTRACEPTION
     Dosage: UNK
     Dates: start: 20090803, end: 20100501
  4. IBUPROFEN (ADVIL) [Concomitant]
     Indication: BACK PAIN

REACTIONS (3)
  - PULMONARY EMBOLISM [None]
  - DEEP VEIN THROMBOSIS [None]
  - INJURY [None]
